FAERS Safety Report 8879079 (Version 1)
Quarter: 2012Q4

REPORT INFORMATION
  Report Type: Spontaneous
  Country: JP (occurrence: None)
  Receive Date: 20121025
  Receipt Date: 20121025
  Transmission Date: 20130627
  Serious: Yes (Other)
  Sender: FDA-Public Use
  Company Number: TPA2012A08258

PATIENT
  Age: 65 Year
  Sex: Male

DRUGS (4)
  1. FEBURIC (FEBUXOSTAT) [Suspect]
     Indication: HYPERURICAEMIA
     Route: 048
     Dates: end: 20120821
  2. ATENOTE (CARVEDILOL) [Concomitant]
  3. AMLODIPINE (AMLODIPINE) [Concomitant]
  4. MICARDIS (TELMISARTAN) [Concomitant]

REACTIONS (1)
  - Drug-induced liver injury [None]
